FAERS Safety Report 17479390 (Version 1)
Quarter: 2020Q1

REPORT INFORMATION
  Report Type: Spontaneous
  Country: PL (occurrence: PL)
  Receive Date: 20200228
  Receipt Date: 20200228
  Transmission Date: 20200409
  Serious: Yes (Death, Other)
  Sender: FDA-Public Use
  Company Number: PL-MYLANLABS-2020M1022824

PATIENT
  Age: 53 Year
  Sex: Female

DRUGS (2)
  1. IBRANCE [Suspect]
     Active Substance: PALBOCICLIB
     Indication: BREAST CANCER METASTATIC
     Dosage: 125 MG, CYCLIC (3 WEEKS TREATMENT / 1 WEEK BREAK)
     Dates: start: 201911
  2. FULVESTRANT. [Suspect]
     Active Substance: FULVESTRANT
     Indication: BREAST CANCER
     Dosage: UNK
     Dates: start: 201911

REACTIONS (4)
  - Hepatic failure [Fatal]
  - Leukopenia [Not Recovered/Not Resolved]
  - Neoplasm progression [Fatal]
  - Thrombocytopenia [Not Recovered/Not Resolved]
